FAERS Safety Report 9516098 (Version 2)
Quarter: 2013Q4

REPORT INFORMATION
  Report Type: Spontaneous
  Country: GB (occurrence: None)
  Receive Date: 20130909
  Receipt Date: 20131010
  Transmission Date: 20140711
  Serious: Yes (Other)
  Sender: FDA-Public Use
  Company Number: KAD201308-001136

PATIENT
  Age: 57 Year
  Sex: Male

DRUGS (3)
  1. RIBAVIRIN [Suspect]
     Indication: HEPATITIS C
     Dosage: ORAL
     Route: 048
     Dates: start: 20121214
  2. PEGINTERFERON ALFA-2B [Suspect]
     Indication: HEPATITIS C
     Dosage: POWDER FOR INJECTION
     Route: 058
     Dates: start: 20121214
  3. INCIVO [Suspect]
     Indication: HEPATITIS C
     Dosage: 750 MG, THREE TIMES A DAY, ORAL
     Route: 048
     Dates: start: 20121214

REACTIONS (13)
  - Blood creatinine increased [None]
  - Nausea [None]
  - Neutropenia [None]
  - Oropharyngeal pain [None]
  - Dysgeusia [None]
  - Fatigue [None]
  - Blood urea increased [None]
  - Weight decreased [None]
  - Anaemia [None]
  - Cough [None]
  - Oral fungal infection [None]
  - Oral herpes [None]
  - Pyrexia [None]
